FAERS Safety Report 7640142-0 (Version None)
Quarter: 2011Q3

REPORT INFORMATION
  Report Type: 
  Country: None (occurrence: None)
  Receive Date: 20110728
  Receipt Date: 20110708
  Transmission Date: 20111222
  Serious: No
  Sender: FDA-Public Use
  Company Number: US-BAYER-2011-059854

PATIENT
  Age: 79 Year
  Sex: Female
  Weight: 62 kg

DRUGS (5)
  1. ALEVE (CAPLET) [Suspect]
     Indication: ARTHRITIS
     Dosage: 440 MG, QD, BOTTLE COUNT 200S
     Route: 048
     Dates: start: 20090101
  2. VIACTIV [CALCIUM] [Concomitant]
  3. VITAMIN B-12 [Concomitant]
  4. DIOVAN [Concomitant]
  5. ALEVE (CAPLET) [Suspect]
     Dosage: 440 MG, QD,  BOTTLE COUNT 200S
     Route: 048
     Dates: start: 20110706, end: 20110706

REACTIONS (1)
  - DIZZINESS [None]
